FAERS Safety Report 5941153-3 (Version None)
Quarter: 2008Q4

REPORT INFORMATION
  Report Type: 
  Country: None (occurrence: None)
  Receive Date: 20081104
  Receipt Date: 20081023
  Transmission Date: 20090506
  Serious: Yes (Other)
  Sender: FDA-Public Use
  Company Number: CZ-PFIZER INC-2008089782

PATIENT
  Age: 40 Year
  Sex: Male

DRUGS (3)
  1. FLUCONAZOLE [Suspect]
     Dosage: DAILY DOSE:400MG
     Route: 042
  2. FLUCONAZOLE [Suspect]
     Dosage: DAILY DOSE:150MG
     Route: 048
  3. VORICONAZOLE [Suspect]
     Dosage: DAILY DOSE:200MG
     Route: 048

REACTIONS (1)
  - FUNGAL ENDOCARDITIS [None]
